FAERS Safety Report 9832745 (Version 1)
Quarter: 2014Q1

REPORT INFORMATION
  Report Type: Spontaneous
  Country: CH (occurrence: CH)
  Receive Date: 20140121
  Receipt Date: 20140121
  Transmission Date: 20141002
  Serious: Yes (Other)
  Sender: FDA-Public Use
  Company Number: PHHY2014CH004082

PATIENT
  Age: 51 Year
  Sex: Male

DRUGS (9)
  1. SYNACTHEN [Suspect]
     Dosage: 250 MG, UNK
     Route: 065
  2. TRIAMCINOLONE [Interacting]
     Indication: EPICONDYLITIS
     Dosage: 40 MG IN EACH ELBOW (2 INJECTIONS)
     Route: 065
  3. CLOBETASOL [Interacting]
     Indication: RASH
     Route: 061
  4. FLUTICASONE [Interacting]
     Indication: DYSPNOEA
     Route: 055
  5. HYDROCORTISONE [Interacting]
     Dosage: 20 MG (15MG (MORNING) AND 5MG (NOON))
  6. RITONAVIR [Interacting]
     Indication: HIV INFECTION
     Dosage: 100 MG, QID
  7. ETRAVIRINE [Concomitant]
     Indication: HIV INFECTION CDC GROUP III
     Dosage: 400 MG, QID
  8. DIDANOSINE [Concomitant]
     Indication: HIV INFECTION CDC GROUP III
     Dosage: 400 MG, QID
  9. ATAZANAVIR [Concomitant]
     Indication: HIV INFECTION CDC GROUP III
     Dosage: 300 MG, QID

REACTIONS (10)
  - Hypothalamic pituitary adrenal axis suppression [Recovered/Resolved]
  - Cushing^s syndrome [Recovered/Resolved]
  - Skin discolouration [Recovered/Resolved]
  - Telangiectasia [Recovered/Resolved]
  - Fat tissue increased [Recovered/Resolved]
  - Rash [Recovered/Resolved]
  - Pulmonary embolism [Unknown]
  - Dyspnoea [Unknown]
  - Deep vein thrombosis [Unknown]
  - Drug interaction [Unknown]
